FAERS Safety Report 17556688 (Version 7)
Quarter: 2021Q1

REPORT INFORMATION
  Report Type: Report from Study
  Country: CA (occurrence: CA)
  Receive Date: 20200318
  Receipt Date: 20210312
  Transmission Date: 20210419
  Serious: Yes (Life-Threatening, Hospitalization, Other)
  Sender: FDA-Public Use
  Company Number: PHHY2015CA075604

PATIENT
  Age: 62 Year
  Sex: Female

DRUGS (3)
  1. SANDOSTATIN LAR DEPOT [Suspect]
     Active Substance: OCTREOTIDE ACETATE
     Indication: PANCREATIC NEUROENDOCRINE TUMOUR
     Dosage: 30 MG, Q4W
     Route: 030
     Dates: start: 20150411
  2. SANDOSTATIN LAR DEPOT [Suspect]
     Active Substance: OCTREOTIDE ACETATE
     Dosage: 30 MG, Q4W
     Route: 030
     Dates: start: 20200109
  3. SANDOSTATIN LAR DEPOT [Suspect]
     Active Substance: OCTREOTIDE ACETATE

REACTIONS (37)
  - Nausea [Recovered/Resolved]
  - Constipation [Unknown]
  - Injection site pain [Unknown]
  - Leukaemia [Unknown]
  - Pancreatic neuroendocrine tumour [Unknown]
  - Influenza [Unknown]
  - Blood pressure increased [Unknown]
  - Asthenia [Unknown]
  - Flushing [Unknown]
  - Haemoglobin decreased [Unknown]
  - Second primary malignancy [Unknown]
  - Infection susceptibility increased [Unknown]
  - Myelodysplastic syndrome [Unknown]
  - White blood cell disorder [Unknown]
  - Acute myeloid leukaemia [Unknown]
  - Lethargy [Unknown]
  - Myalgia [Unknown]
  - Near death experience [Unknown]
  - Fatigue [Unknown]
  - Neoplasm progression [Unknown]
  - Arthralgia [Unknown]
  - Sluggishness [Unknown]
  - Diarrhoea [Recovered/Resolved]
  - Blood test abnormal [Unknown]
  - Red blood cell count decreased [Unknown]
  - White blood cell count decreased [Unknown]
  - Body temperature decreased [Unknown]
  - Blood bilirubin increased [Unknown]
  - Pneumonia [Recovered/Resolved]
  - Nasopharyngitis [Unknown]
  - Vomiting [Recovered/Resolved]
  - Abdominal pain [Unknown]
  - Platelet count decreased [Unknown]
  - Bronchitis [Unknown]
  - Blood glucose decreased [Unknown]
  - Gastroenteritis viral [Recovered/Resolved]
  - Back pain [Unknown]

NARRATIVE: CASE EVENT DATE: 2015
